FAERS Safety Report 5000702-2 (Version None)
Quarter: 2006Q2

REPORT INFORMATION
  Report Type: 
  Country: None (occurrence: None)
  Receive Date: 20060512
  Receipt Date: 20060504
  Transmission Date: 20061013
  Serious: Yes (Other)
  Sender: FDA-Public Use
  Company Number: US-JNJFOC-20060501253

PATIENT
  Sex: Female

DRUGS (19)
  1. REMICADE [Suspect]
     Route: 042
  2. REMICADE [Suspect]
     Indication: RHEUMATOID ARTHRITIS
     Route: 042
  3. DETROL [Concomitant]
  4. ATENOLOL [Concomitant]
  5. HYZAAR [Concomitant]
  6. HYZAAR [Concomitant]
  7. PLENDIL [Concomitant]
  8. PREMARIN [Concomitant]
  9. FOLIC ACID [Concomitant]
  10. PLAVIX [Concomitant]
  11. AMITRIPTYLINE HCL [Concomitant]
  12. PREDNISONE TAB [Concomitant]
  13. FOSAMAX [Concomitant]
  14. CALCIUM+D [Concomitant]
  15. CALCIUM+D [Concomitant]
  16. VITAMIN B COMPLEX CAP [Concomitant]
  17. VITAMIN B COMPLEX CAP [Concomitant]
  18. VITAMIN B COMPLEX CAP [Concomitant]
  19. VITAMIN B COMPLEX CAP [Concomitant]

REACTIONS (2)
  - LEUKAEMIA [None]
  - SICKLE CELL ANAEMIA WITH CRISIS [None]
